FAERS Safety Report 20373377 (Version 2)
Quarter: 2022Q2

REPORT INFORMATION
  Report Type: Spontaneous
  Country: US (occurrence: US)
  Receive Date: 20220125
  Receipt Date: 20220425
  Transmission Date: 20220721
  Serious: No
  Sender: FDA-Public Use
  Company Number: US-HISAMITSU PHARMACEUTICAL CO., INC.-2021-NOV-US004011

PATIENT
  Sex: Female

DRUGS (2)
  1. SECUADO [Suspect]
     Active Substance: ASENAPINE
     Indication: Dissociative disorder
     Dosage: 5.7MG/24 HOURS, UNKNOWN
     Route: 062
     Dates: start: 2021, end: 20211210
  2. SECUADO [Suspect]
     Active Substance: ASENAPINE
     Dosage: 3.8 MG/24 HOURS, UNKNOWN
     Route: 062
     Dates: start: 2021, end: 2021

REACTIONS (7)
  - Drooling [Unknown]
  - Feeling abnormal [Unknown]
  - Tremor [Unknown]
  - Gait disturbance [Unknown]
  - Tardive dyskinesia [Unknown]
  - Therapeutic product effect incomplete [Recovered/Resolved]
  - Off label use [Recovered/Resolved]

NARRATIVE: CASE EVENT DATE: 20210101
